FAERS Safety Report 13954374 (Version 1)
Quarter: 2017Q3

REPORT INFORMATION
  Report Type: Spontaneous
  Country: US (occurrence: US)
  Receive Date: 20170911
  Receipt Date: 20170911
  Transmission Date: 20171128
  Serious: No
  Sender: FDA-Public Use
  Company Number: PHEH2017US028509

PATIENT
  Sex: Male
  Weight: 89 kg

DRUGS (1)
  1. NYSTATIN+TRIAMCINOLONE [Suspect]
     Active Substance: NYSTATIN\TRIAMCINOLONE ACETONIDE
     Indication: FUNGAL INFECTION
     Dosage: UNK UNK, TID (TOPICALLY TO AFFECTED AREAS THREE TIMES DAILY)
     Route: 061

REACTIONS (1)
  - Burning sensation [Not Recovered/Not Resolved]
